FAERS Safety Report 11738620 (Version 1)
Quarter: 2015Q4

REPORT INFORMATION
  Report Type: Spontaneous
  Country: US (occurrence: US)
  Receive Date: 20151110
  Receipt Date: 20151110
  Transmission Date: 20160304
  Serious: No
  Sender: FDA-Public Use
  Company Number: US-ELI_LILLY_AND_COMPANY-US201207007249

PATIENT
  Age: 71 Year
  Sex: Female

DRUGS (2)
  1. FORTEO [Suspect]
     Active Substance: TERIPARATIDE
     Dosage: 20 UG, QD
  2. FORTEO [Suspect]
     Active Substance: TERIPARATIDE
     Indication: OSTEOPOROSIS
     Dosage: 20 UG, QD
     Dates: start: 20120718

REACTIONS (6)
  - Abdominal discomfort [Unknown]
  - Pain of skin [Unknown]
  - Incorrect product storage [Unknown]
  - Pruritus [Not Recovered/Not Resolved]
  - Injection site swelling [Unknown]
  - Anxiety [Unknown]

NARRATIVE: CASE EVENT DATE: 2012
